FAERS Safety Report 5127126-1 (Version None)
Quarter: 2006Q4

REPORT INFORMATION
  Report Type: 
  Country: None (occurrence: None)
  Receive Date: 20061013
  Receipt Date: 20060816
  Transmission Date: 20070319
  Serious: Yes (Hospitalization)
  Sender: FDA-Public Use
  Company Number: PHBS2006BR12510

PATIENT
  Age: 8 Year
  Sex: Female

DRUGS (1)
  1. TRILEPTAL [Suspect]
     Indication: MOTOR DYSFUNCTION
     Route: 048

REACTIONS (2)
  - CONVULSION [None]
  - PHARMACEUTICAL PRODUCT COMPLAINT [None]
